FAERS Safety Report 10644904 (Version 2)
Quarter: 2014Q4

REPORT INFORMATION
  Report Type: Spontaneous
  Country: ES (occurrence: ES)
  Receive Date: 20141211
  Receipt Date: 20141211
  Transmission Date: 20150529
  Serious: Yes (Hospitalization)
  Sender: FDA-Public Use
  Company Number: ES-ACCORD-027479

PATIENT
  Age: 38 Year
  Sex: Male

DRUGS (1)
  1. METHOTREXATE [Suspect]
     Active Substance: METHOTREXATE
     Indication: PSORIASIS
     Route: 048

REACTIONS (10)
  - Genital ulceration [Recovered/Resolved]
  - Pyrexia [Unknown]
  - Dysphagia [Unknown]
  - Hepatic enzyme increased [Recovered/Resolved]
  - Inappropriate schedule of drug administration [Unknown]
  - Hyperkeratosis [Recovering/Resolving]
  - Mouth ulceration [Recovered/Resolved]
  - Skin ulcer [Recovered/Resolved]
  - Toxicity to various agents [Recovered/Resolved]
  - Platelet count decreased [Recovered/Resolved]
